FAERS Safety Report 5474178-5 (Version None)
Quarter: 2007Q3

REPORT INFORMATION
  Report Type: 
  Country: None (occurrence: None)
  Receive Date: 20070928
  Receipt Date: 20070920
  Transmission Date: 20080115
  Serious: Yes (Hospitalization)
  Sender: FDA-Public Use
  Company Number: 2007322344

PATIENT
  Age: 4 Year
  Sex: Female
  Weight: 20.4119 kg

DRUGS (1)
  1. LISTERINE AGENT COOL BLUE BUBBLE BLAST (NO ACTIVE INGREDIENT) [Suspect]
     Indication: DENTAL DISORDER PROPHYLAXIS
     Dosage: 10 ML 3 TIMES PER WEEK (3 IN 1 WK), ORAL
     Route: 048
     Dates: start: 20070206, end: 20070410

REACTIONS (3)
  - EAR INFECTION [None]
  - PHARYNGITIS [None]
  - URINARY TRACT INFECTION [None]
